FAERS Safety Report 6591565-2 (Version None)
Quarter: 2010Q1

REPORT INFORMATION
  Report Type: 
  Country: None (occurrence: None)
  Receive Date: 20100221
  Receipt Date: 20090915
  Transmission Date: 20100710
  Serious: No
  Sender: FDA-Public Use
  Company Number: US-ALLERGAN-0910247US

PATIENT
  Age: 55 Year
  Sex: Female

DRUGS (2)
  1. BOTOX COSMETIC [Suspect]
     Indication: SKIN WRINKLING
     Dosage: 21 UNITS, SINGLE
     Route: 030
     Dates: start: 20090702, end: 20090702
  2. BOTOX COSMETIC [Suspect]
     Dosage: UNK
     Dates: start: 20080826, end: 20080826

REACTIONS (2)
  - EYELID PTOSIS [None]
  - INTENTIONAL DRUG MISUSE [None]
